FAERS Safety Report 4273464-4 (Version None)
Quarter: 2004Q1

REPORT INFORMATION
  Report Type: 
  Country: None (occurrence: None)
  Receive Date: 20040116
  Receipt Date: 20040116
  Transmission Date: 20041129
  Serious: Yes (Hospitalization)
  Sender: FDA-Public Use
  Company Number: None

PATIENT
  Age: 69 Year
  Sex: Male

DRUGS (1)
  1. CLOPIDOGREL [Suspect]
     Dosage: 75 MG PO QD
     Route: 048

REACTIONS (3)
  - LOOSE STOOLS [None]
  - NAUSEA [None]
  - VOMITING [None]
